FAERS Safety Report 23422524 (Version 1)
Quarter: 2024Q1

REPORT INFORMATION
  Report Type: Spontaneous
  Country: GB (occurrence: GB)
  Receive Date: 20240119
  Receipt Date: 20240119
  Transmission Date: 20240410
  Serious: Yes (Other)
  Sender: FDA-Public Use
  Company Number: GB-ANIPHARMA-2024-UK-000006

PATIENT
  Age: 47 Year
  Sex: Male
  Weight: 119 kg

DRUGS (5)
  1. CANDESARTAN [Suspect]
     Active Substance: CANDESARTAN
     Indication: Product used for unknown indication
     Dosage: DOSE TEXT: 2
     Route: 048
     Dates: start: 20240103
  2. IBUPROFEN [Concomitant]
     Active Substance: IBUPROFEN
     Dosage: DOSE TEXT: APPLY 2-3 TIMES/DAY TO PAINFUL JOINT (FENBID FO...
     Route: 065
     Dates: start: 20230324, end: 20231127
  3. NEOMYCIN SULFATE [Concomitant]
     Active Substance: NEOMYCIN SULFATE
     Dosage: DOSE TEXT: 1-APPLY
     Route: 065
     Dates: start: 20231109, end: 20231119
  4. PROPRANOLOL [Concomitant]
     Active Substance: PROPRANOLOL HYDROCHLORIDE
     Dosage: DOSE TEXT:1
     Route: 065
     Dates: start: 20230324, end: 20231127
  5. TADALAFIL [Concomitant]
     Active Substance: TADALAFIL
     Dosage: USE AS DIRECTED
     Route: 065
     Dates: start: 20230324, end: 20231127

REACTIONS (2)
  - Oropharyngeal pain [Unknown]
  - Musculoskeletal discomfort [Unknown]
